FAERS Safety Report 6581997-0 (Version None)
Quarter: 2010Q1

REPORT INFORMATION
  Report Type: 
  Country: None (occurrence: None)
  Receive Date: 20100215
  Receipt Date: 20100205
  Transmission Date: 20100710
  Serious: Yes (Life-Threatening, Hospitalization)
  Sender: FDA-Public Use
  Company Number: JP-MERCK-1002USA01607

PATIENT
  Age: 83 Year
  Sex: Male

DRUGS (6)
  1. JANUVIA [Suspect]
     Indication: DIABETES MELLITUS
     Route: 048
     Dates: start: 20100117, end: 20100126
  2. AMARYL [Concomitant]
     Dosage: DIVIDED DOSE FREQUENCY IS UNKNOWN.
     Route: 048
     Dates: end: 20100116
  3. ZAMEC [Concomitant]
     Route: 048
  4. METHYCOBAL [Concomitant]
     Route: 065
  5. PURSENNID [Concomitant]
     Route: 065
  6. MAGNESIUM OXIDE [Concomitant]
     Route: 048

REACTIONS (1)
  - HYPOGLYCAEMIA [None]
